FAERS Safety Report 6770809-8 (Version None)
Quarter: 2010Q2

REPORT INFORMATION
  Report Type: 
  Country: None (occurrence: None)
  Receive Date: 20100614
  Receipt Date: 20100614
  Transmission Date: 20101027
  Serious: Yes (Other)
  Sender: FDA-Public Use
  Company Number: None

PATIENT
  Sex: Male

DRUGS (1)
  1. MDP (MEDRONATE) LABELED WITH TC 99 M 25 ML AMERSHAM DISPENSED BY TRIAD [Suspect]
     Indication: BONE SCAN
     Dosage: 25 ML X1 IV
     Route: 042
     Dates: start: 20100526

REACTIONS (4)
  - ANXIETY [None]
  - INSOMNIA [None]
  - PALPITATIONS [None]
  - RASH ERYTHEMATOUS [None]
